FAERS Safety Report 9331048 (Version 1)
Quarter: 2013Q2

REPORT INFORMATION
  Report Type: Spontaneous
  Country: US (occurrence: US)
  Receive Date: 20130605
  Receipt Date: 20130605
  Transmission Date: 20140414
  Serious: Yes (Other)
  Sender: FDA-Public Use
  Company Number: US-BRISTOL-MYERS SQUIBB COMPANY-18967075

PATIENT
  Age: 66 Year
  Sex: Female
  Weight: 74.83 kg

DRUGS (3)
  1. BYDUREON [Suspect]
     Indication: TYPE 2 DIABETES MELLITUS
     Route: 058
     Dates: start: 2013
  2. METFORMIN HCL [Suspect]
  3. PRADAXA [Concomitant]

REACTIONS (5)
  - Cataract [Unknown]
  - Blood glucose increased [Unknown]
  - Injection site nodule [Unknown]
  - Influenza like illness [Unknown]
  - Fatigue [Unknown]
